FAERS Safety Report 5059153-7 (Version None)
Quarter: 2006Q3

REPORT INFORMATION
  Report Type: 
  Country: None (occurrence: None)
  Receive Date: 20060718
  Receipt Date: 20060630
  Transmission Date: 20061208
  Serious: Yes (Hospitalization)
  Sender: FDA-Public Use
  Company Number: US200607001552

PATIENT
  Sex: Male
  Weight: 78.5 kg

DRUGS (5)
  1. ZYPREXA [Suspect]
     Dosage: SEE IMAGE
     Dates: start: 20020624, end: 20040201
  2. SEROQUEL [Concomitant]
  3. WELLBUTRIN [Concomitant]
  4. LOPRESSOR [Concomitant]
  5. PREDNISONE TAB [Concomitant]

REACTIONS (6)
  - BIOPSY LIVER [None]
  - DIABETES MELLITUS [None]
  - ERECTILE DYSFUNCTION [None]
  - METABOLIC DISORDER [None]
  - TRANSPLANT [None]
  - WEIGHT DECREASED [None]
